FAERS Safety Report 13014601 (Version 1)
Quarter: 2016Q4

REPORT INFORMATION
  Report Type: Report from Study
  Country: None (occurrence: GB)
  Receive Date: 20161209
  Receipt Date: 20161209
  Transmission Date: 20170207
  Serious: Yes (Hospitalization, Other)
  Sender: FDA-Public Use
  Company Number: GB-ABBVIE-16P-167-1736298-00

PATIENT
  Sex: Female

DRUGS (2)
  1. SINEMET [Concomitant]
     Active Substance: CARBIDOPA\LEVODOPA
     Indication: PRODUCT USED FOR UNKNOWN INDICATION
     Route: 048
  2. DUODOPA [Suspect]
     Active Substance: CARBIDOPA\LEVODOPA
     Indication: PARKINSON^S DISEASE
     Dosage: 5.6MLS/HOUR, ONE CASSETTE DAILY
     Route: 050
     Dates: start: 201608

REACTIONS (13)
  - Limb injury [Unknown]
  - Drug ineffective [Unknown]
  - Movement disorder [Unknown]
  - Toe amputation [Unknown]
  - Tremor [Unknown]
  - Anxiety [Unknown]
  - Device issue [Unknown]
  - Drug effect decreased [Not Recovered/Not Resolved]
  - Affect lability [Unknown]
  - Parkinson^s disease [Unknown]
  - Anger [Unknown]
  - Feeling of despair [Unknown]
  - Infection [Unknown]

NARRATIVE: CASE EVENT DATE: 2016
